FAERS Safety Report 21298198 (Version 1)
Quarter: 2022Q3

REPORT INFORMATION
  Report Type: Spontaneous
  Country: US (occurrence: US)
  Receive Date: 20220906
  Receipt Date: 20220906
  Transmission Date: 20221027
  Serious: Yes (Hospitalization, Other)
  Sender: FDA-Public Use
  Company Number: None

PATIENT
  Age: 75 Year
  Sex: Male

DRUGS (6)
  1. METHYLPREDNISOLONE [Suspect]
     Active Substance: METHYLPREDNISOLONE
     Indication: Back pain
     Route: 008
  2. METHYLPREDNISOLONE [Suspect]
     Active Substance: METHYLPREDNISOLONE
     Indication: Radiculopathy
  3. LIDOCAINE [Concomitant]
     Active Substance: LIDOCAINE
     Route: 061
  4. OMNIPAQUE [Concomitant]
     Active Substance: IOHEXOL
     Indication: Product used for unknown indication
     Route: 008
  5. BUPIVACAINE [Concomitant]
     Active Substance: BUPIVACAINE
     Indication: Product used for unknown indication
     Route: 008
  6. BUPIVACAINE [Concomitant]
     Active Substance: BUPIVACAINE
     Route: 008

REACTIONS (2)
  - Spinal cord infarction [Not Recovered/Not Resolved]
  - Conus medullaris syndrome [Not Recovered/Not Resolved]
